FAERS Safety Report 11604796 (Version 1)
Quarter: 2015Q4

REPORT INFORMATION
  Report Type: Spontaneous
  Country: GB (occurrence: GB)
  Receive Date: 20151007
  Receipt Date: 20151007
  Transmission Date: 20160304
  Serious: Yes (Life-Threatening, Other)
  Sender: FDA-Public Use
  Company Number: GB-BANPHARM-20154279

PATIENT
  Age: 88 Year
  Sex: Male
  Weight: 68 kg

DRUGS (8)
  1. TERBINAFINE HYDROCHLORIDE. [Concomitant]
     Active Substance: TERBINAFINE HYDROCHLORIDE
  2. DIGOXIN. [Concomitant]
     Active Substance: DIGOXIN
     Dosage: DF 62.5 MCG,
  3. CALCICHEW D3 [Concomitant]
     Active Substance: CALCIUM\CHOLECALCIFEROL
  4. COCODAMOL [Concomitant]
     Active Substance: ACETAMINOPHEN\CODEINE PHOSPHATE
     Dosage: 30/500
  5. RAMIPRIL. [Concomitant]
     Active Substance: RAMIPRIL
     Dosage: DF 10 MG,
  6. WAFARIN [Suspect]
     Active Substance: WARFARIN
     Indication: ATRIAL FIBRILLATION
  7. IBUPROFEN UNKNOWN PRODUCT [Suspect]
     Active Substance: IBUPROFEN
     Indication: MUSCULOSKELETAL STIFFNESS
     Dosage: DF 200MG, BID,
     Dates: start: 20150911, end: 20150913
  8. BISOPROLOL [Concomitant]
     Active Substance: BISOPROLOL
     Dosage: DF 1.25 MG,

REACTIONS (7)
  - Ecchymosis [Recovered/Resolved]
  - Lip swelling [Recovered/Resolved]
  - Contusion [Recovered/Resolved]
  - Lip discolouration [Recovered/Resolved]
  - Disorientation [Recovered/Resolved]
  - Balance disorder [Recovered/Resolved]
  - International normalised ratio increased [Recovered/Resolved]

NARRATIVE: CASE EVENT DATE: 20150913
